FAERS Safety Report 8154418-4 (Version None)
Quarter: 2012Q1

REPORT INFORMATION
  Report Type: 
  Country: None (occurrence: None)
  Receive Date: 20120217
  Receipt Date: 20120217
  Transmission Date: 20120608
  Serious: No
  Sender: FDA-Public Use
  Company Number: None

PATIENT
  Age: 63 Year
  Sex: Male

DRUGS (1)
  1. MERCAPTOPURINE [Suspect]
     Dosage: 100 MG EVERY DAY PO
     Route: 048
     Dates: start: 20111130, end: 20111227

REACTIONS (4)
  - MYALGIA [None]
  - PYREXIA [None]
  - NIGHT SWEATS [None]
  - HEADACHE [None]
